FAERS Safety Report 11269831 (Version 1)
Quarter: 2015Q3

REPORT INFORMATION
  Report Type: Spontaneous
  Country: US (occurrence: None)
  Receive Date: 20150713
  Receipt Date: 20150713
  Transmission Date: 20151125
  Serious: Yes (Life-Threatening, Hospitalization, Disabling)
  Sender: FDA-Public Use
  Company Number: None

PATIENT
  Age: 49 Year
  Sex: Male
  Weight: 88.91 kg

DRUGS (10)
  1. NAPROXEN. [Suspect]
     Active Substance: NAPROXEN
     Indication: ARTHRALGIA
  2. PLAXIN [Concomitant]
  3. BABY ASPIRIN [Concomitant]
     Active Substance: ASPIRIN
  4. FISH OIL [Concomitant]
     Active Substance: FISH OIL
  5. LIPITOR [Concomitant]
     Active Substance: ATORVASTATIN CALCIUM
  6. IRON [Concomitant]
     Active Substance: IRON
  7. ACE INHIBITOR [Concomitant]
     Active Substance: UNSPECIFIED INGREDIENT
  8. MULTI VITAMIN [Concomitant]
     Active Substance: VITAMINS
  9. VITAMIN B12 [Concomitant]
     Active Substance: CYANOCOBALAMIN
  10. NAPROXEN. [Suspect]
     Active Substance: NAPROXEN
     Indication: ARTHRITIS

REACTIONS (4)
  - Low density lipoprotein decreased [None]
  - High density lipoprotein increased [None]
  - Myocardial infarction [None]
  - Coronary artery occlusion [None]

NARRATIVE: CASE EVENT DATE: 20150708
